FAERS Safety Report 18491760 (Version 2)
Quarter: 2021Q1

REPORT INFORMATION
  Report Type: Report from Study
  Country: US (occurrence: US)
  Receive Date: 20201111
  Receipt Date: 20210108
  Transmission Date: 20210419
  Serious: No
  Sender: FDA-Public Use
  Company Number: US-BIOVITRUM-2020US6037

PATIENT
  Sex: Female

DRUGS (2)
  1. TYR ANAMIX [Concomitant]
     Indication: PRODUCT USED FOR UNKNOWN INDICATION
     Dosage: EARLY YEARS
  2. ORFADIN [Suspect]
     Active Substance: NITISINONE
     Indication: TYROSINAEMIA
     Dosage: DOSE DECREASED TO 0.5ML BID BACK IN OCT/2020 DUE TO SUCCINYLACETONE LEVEL FALLING BELOW 1.0
     Route: 048
     Dates: start: 20200221

REACTIONS (2)
  - Fungal infection [Unknown]
  - White blood cell count increased [Unknown]
